FAERS Safety Report 7688894-8 (Version None)
Quarter: 2011Q3

REPORT INFORMATION
  Report Type: 
  Country: None (occurrence: None)
  Receive Date: 20110817
  Receipt Date: 20110805
  Transmission Date: 20111222
  Serious: Yes (Other)
  Sender: FDA-Public Use
  Company Number: PHHY2011BR71178

PATIENT
  Sex: Female

DRUGS (4)
  1. EXELON [Suspect]
     Dosage: 1.5 MG, UNK
  2. EXELON [Suspect]
     Dosage: 4.6 MG, UNK
     Route: 062
  3. EXELON [Suspect]
     Dosage: 9.5 MG, UNK
     Route: 062
  4. EXELON [Suspect]
     Dosage: 4.6 MG, UNK
     Route: 062

REACTIONS (2)
  - SOMNOLENCE [None]
  - CEREBROVASCULAR ACCIDENT [None]
